FAERS Safety Report 11875975 (Version 1)
Quarter: 2015Q4

REPORT INFORMATION
  Report Type: Spontaneous
  Country: NL (occurrence: NL)
  Receive Date: 20151229
  Receipt Date: 20151229
  Transmission Date: 20160305
  Serious: Yes (Other)
  Sender: FDA-Public Use
  Company Number: NL-ROXANE LABORATORIES, INC.-2015-RO-02136RO

PATIENT
  Age: 17 Year
  Sex: Female

DRUGS (1)
  1. RISPERIDONE. [Suspect]
     Active Substance: RISPERIDONE
     Indication: BIPOLAR I DISORDER
     Dosage: 2 MG
     Route: 065

REACTIONS (5)
  - VIth nerve paralysis [Recovered/Resolved]
  - Blindness [Recovered/Resolved]
  - Visual field defect [Not Recovered/Not Resolved]
  - Intracranial pressure increased [Recovered/Resolved]
  - Weight increased [Recovered/Resolved]
